FAERS Safety Report 4705165-X (Version None)
Quarter: 2005Q3

REPORT INFORMATION
  Report Type: 
  Country: None (occurrence: None)
  Receive Date: 20050701
  Receipt Date: 20050503
  Transmission Date: 20060218
  Serious: Yes (Death, Life-Threatening, Hospitalization, Other)
  Sender: FDA-Public Use
  Company Number: 2005UW06807

PATIENT
  Age: 29255 Day
  Sex: Male
  Weight: 68.2 kg

DRUGS (1)
  1. CRESTOR [Suspect]
     Indication: BLOOD CHOLESTEROL INCREASED
     Route: 048
     Dates: start: 20050101, end: 20050313

REACTIONS (9)
  - ASTHENIA [None]
  - CARDIAC ARREST [None]
  - COUGH [None]
  - DYSPNOEA [None]
  - FATIGUE [None]
  - MUSCLE ATROPHY [None]
  - MUSCLE DISORDER [None]
  - PHARYNGOLARYNGEAL PAIN [None]
  - RENAL FAILURE [None]
